FAERS Safety Report 16266639 (Version 1)
Quarter: 2019Q2

REPORT INFORMATION
  Report Type: Not Available
  Country: US (occurrence: US)
  Receive Date: 20190502
  Receipt Date: 20190502
  Transmission Date: 20190711
  Serious: No
  Sender: FDA-Public Use
  Company Number: US-NEUROCRINE BIOSCIENCES INC.-2019NBI01025

PATIENT
  Sex: Male

DRUGS (8)
  1. BUSPIRONE HCL [Concomitant]
     Active Substance: BUSPIRONE HYDROCHLORIDE
  2. DEPAKOTE [Concomitant]
     Active Substance: DIVALPROEX SODIUM
  3. SEROQUEL [Concomitant]
     Active Substance: QUETIAPINE FUMARATE
  4. REMERON [Concomitant]
     Active Substance: MIRTAZAPINE
  5. FLOMAX [Concomitant]
     Active Substance: TAMSULOSIN HYDROCHLORIDE
  6. KLONOPIN [Concomitant]
     Active Substance: CLONAZEPAM
  7. TEGRETOL [Concomitant]
     Active Substance: CARBAMAZEPINE
  8. INGREZZA [Suspect]
     Active Substance: VALBENAZINE
     Indication: TARDIVE DYSKINESIA
     Route: 048
     Dates: start: 20190207, end: 201904

REACTIONS (1)
  - Blood pressure increased [Unknown]

NARRATIVE: CASE EVENT DATE: 2019
